FAERS Safety Report 5567673-1 (Version None)
Quarter: 2007Q4

REPORT INFORMATION
  Report Type: 
  Country: None (occurrence: None)
  Receive Date: 20071214
  Receipt Date: 20071130
  Transmission Date: 20080405
  Serious: Yes (Hospitalization)
  Sender: FDA-Public Use
  Company Number: 2007002358

PATIENT
  Age: 79 Year
  Sex: Male

DRUGS (8)
  1. TARCEVA [Suspect]
     Dosage: (MG), ORAL
     Route: 048
     Dates: start: 20070523
  2. BRIMONIDINE TARTRATE [Concomitant]
  3. COSOPT (COSOPT) [Concomitant]
  4. LIPITOR [Concomitant]
  5. LISINOPRIL [Concomitant]
  6. MS CONTIN [Concomitant]
  7. OXYCODONE HCL [Concomitant]
  8. ZOMETA [Concomitant]

REACTIONS (19)
  - ABASIA [None]
  - ACTIVITIES OF DAILY LIVING IMPAIRED [None]
  - BACK PAIN [None]
  - BLOOD CREATININE INCREASED [None]
  - BLOOD SODIUM INCREASED [None]
  - BLOOD UREA INCREASED [None]
  - DEHYDRATION [None]
  - DRY MOUTH [None]
  - DYSPHAGIA [None]
  - HAEMOGLOBIN DECREASED [None]
  - MALIGNANT NEOPLASM PROGRESSION [None]
  - NON-SMALL CELL LUNG CANCER [None]
  - ORAL INTAKE REDUCED [None]
  - PAIN [None]
  - PLATELET COUNT INCREASED [None]
  - PULSE ABSENT [None]
  - RESPIRATORY ARREST [None]
  - UNRESPONSIVE TO STIMULI [None]
  - WHITE BLOOD CELL COUNT INCREASED [None]
